FAERS Safety Report 16556653 (Version 2)
Quarter: 2019Q3

REPORT INFORMATION
  Report Type: Spontaneous
  Country: AU (occurrence: AU)
  Receive Date: 20190711
  Receipt Date: 20190711
  Transmission Date: 20191004
  Serious: Yes (Other)
  Sender: FDA-Public Use
  Company Number: PHHY2019AU156940

PATIENT
  Age: 45 Year
  Sex: Male

DRUGS (7)
  1. NORADRENALINE [Suspect]
     Active Substance: NOREPINEPHRINE
     Indication: PRODUCT USED FOR UNKNOWN INDICATION
     Dosage: UNK
     Route: 065
  2. GILENYA [Suspect]
     Active Substance: FINGOLIMOD HYDROCHLORIDE
     Indication: PRODUCT USED FOR UNKNOWN INDICATION
     Dosage: UNK
     Route: 065
  3. ELEUPHRAT [Suspect]
     Active Substance: BETAMETHASONE DIPROPIONATE
     Indication: PRODUCT USED FOR UNKNOWN INDICATION
     Dosage: UNK
     Route: 065
  4. PANADEINE FORTE [Suspect]
     Active Substance: ACETAMINOPHEN\CODEINE PHOSPHATE
     Indication: PRODUCT USED FOR UNKNOWN INDICATION
     Dosage: UNK
     Route: 065
  5. CEFTRIAXONE. [Suspect]
     Active Substance: CEFTRIAXONE
     Indication: PRODUCT USED FOR UNKNOWN INDICATION
     Dosage: UNK
     Route: 065
  6. IBILEX [Suspect]
     Active Substance: CEPHALEXIN
     Indication: PRODUCT USED FOR UNKNOWN INDICATION
     Dosage: UNK
     Route: 065
  7. ZOCOR [Suspect]
     Active Substance: SIMVASTATIN
     Indication: PRODUCT USED FOR UNKNOWN INDICATION
     Dosage: UNK
     Route: 065

REACTIONS (42)
  - Nephrolithiasis [Unknown]
  - Blood cholesterol increased [Unknown]
  - Cardiometabolic syndrome [Unknown]
  - Flank pain [Unknown]
  - Lethargy [Unknown]
  - Skin lesion [Unknown]
  - Dizziness [Unknown]
  - White blood cell count decreased [Unknown]
  - Sepsis [Unknown]
  - Anxiety [Unknown]
  - Chromaturia [Unknown]
  - Haematuria [Unknown]
  - Injury [Unknown]
  - Urinary incontinence [Unknown]
  - Cystitis [Unknown]
  - Transaminases increased [Unknown]
  - Headache [Unknown]
  - Diarrhoea [Unknown]
  - Escherichia infection [Unknown]
  - Defaecation urgency [Unknown]
  - Fall [Unknown]
  - Mobility decreased [Unknown]
  - Urinary tract infection [Unknown]
  - Tinea pedis [Unknown]
  - Prescribed underdose [Unknown]
  - Hydronephrosis [Unknown]
  - Urosepsis [Unknown]
  - Paraesthesia [Unknown]
  - Lymphocyte count decreased [Unknown]
  - Infection [Unknown]
  - Nasopharyngitis [Unknown]
  - Delirium [Unknown]
  - Liver function test increased [Unknown]
  - Pyrexia [Unknown]
  - Tachycardia [Unknown]
  - Myalgia [Unknown]
  - Chills [Unknown]
  - Erectile dysfunction [Unknown]
  - High density lipoprotein decreased [Unknown]
  - Hot flush [Unknown]
  - Micturition urgency [Unknown]
  - Hypotension [Unknown]
